FAERS Safety Report 12169902 (Version 1)
Quarter: 2016Q1

REPORT INFORMATION
  Report Type: Spontaneous
  Country: US (occurrence: US)
  Receive Date: 20160310
  Receipt Date: 20160310
  Transmission Date: 20160526
  Serious: Yes (Hospitalization, Other)
  Sender: FDA-Public Use
  Company Number: US-ASTRAZENECA-2016SE25376

PATIENT
  Age: 30455 Day
  Sex: Male
  Weight: 86.2 kg

DRUGS (13)
  1. TUDORZA PRESSAIR [Suspect]
     Active Substance: ACLIDINIUM BROMIDE
     Indication: CHRONIC OBSTRUCTIVE PULMONARY DISEASE
     Dosage: 400 MCG, TWO PUFFS TWICE A DAY
     Route: 055
  2. EXCELON PATCH [Concomitant]
     Indication: DEMENTIA
     Dates: start: 201412
  3. FERROUS SULFATE [Concomitant]
     Active Substance: FERROUS SULFATE\FERROUS SULFATE, DRIED
     Indication: ANAEMIA
     Route: 048
     Dates: start: 201512
  4. VITAMIN B12 [Concomitant]
     Active Substance: CYANOCOBALAMIN
     Indication: ANAEMIA
     Route: 048
     Dates: start: 201412
  5. PREDNISONE. [Concomitant]
     Active Substance: PREDNISONE
     Indication: EYE DISORDER
     Dosage: 1 PERCENT, 1 DROP IN EACH EYE TWICE A DAY
     Route: 047
  6. SPIRIVA [Concomitant]
     Active Substance: TIOTROPIUM BROMIDE MONOHYDRATE
     Route: 055
  7. DIVALPROEX SODIUM. [Concomitant]
     Active Substance: DIVALPROEX SODIUM
     Indication: DEMENTIA
     Route: 048
     Dates: start: 201412
  8. TYLENOL [Concomitant]
     Active Substance: ACETAMINOPHEN
     Indication: BACK PAIN
  9. FOLIC ACID. [Concomitant]
     Active Substance: FOLIC ACID
     Route: 048
     Dates: start: 201412
  10. DALIRESP [Suspect]
     Active Substance: ROFLUMILAST
     Indication: CHRONIC OBSTRUCTIVE PULMONARY DISEASE
     Route: 048
  11. PROAIR HFA [Concomitant]
     Active Substance: ALBUTEROL SULFATE
     Dosage: 1 TO 2 PUFFS EVERY 6 HOURS AS NEEDED
  12. BABY ASPIRIN [Concomitant]
     Active Substance: ASPIRIN
  13. CLARITIN [Concomitant]
     Active Substance: LORATADINE
     Indication: RHINITIS ALLERGIC

REACTIONS (5)
  - Product quality issue [Unknown]
  - Dementia [Unknown]
  - Drug dose omission [Unknown]
  - Rhinitis allergic [Unknown]
  - Cerebrovascular accident [Unknown]

NARRATIVE: CASE EVENT DATE: 20141206
